FAERS Safety Report 15666394 (Version 1)
Quarter: 2018Q4

REPORT INFORMATION
  Report Type: Report from Study
  Country: GB (occurrence: GB)
  Receive Date: 20181128
  Receipt Date: 20181128
  Transmission Date: 20190205
  Serious: Yes (Other)
  Sender: FDA-Public Use
  Company Number: GB-SHIRE-GB201844840

PATIENT

DRUGS (1)
  1. CINRYZE [Suspect]
     Active Substance: HUMAN C1-ESTERASE INHIBITOR
     Indication: HEREDITARY ANGIOEDEMA
     Dosage: 1000 IU, 2X A WEEK
     Route: 065

REACTIONS (4)
  - Chills [Unknown]
  - Vomiting [Unknown]
  - Incorrect dose administered [Unknown]
  - Reaction to previous exposure to any vaccine [Unknown]
